FAERS Safety Report 9236131 (Version 1)
Quarter: 2013Q2

REPORT INFORMATION
  Report Type: Spontaneous
  Country: US (occurrence: None)
  Receive Date: 20130416
  Receipt Date: 20130416
  Transmission Date: 20140414
  Serious: Yes (Other)
  Sender: FDA-Public Use
  Company Number: None

PATIENT
  Age: 80 Year
  Sex: Female
  Weight: 51.71 kg

DRUGS (1)
  1. SULFAMETHOXAZOLE + TRIMETHOPRIM [Suspect]
     Dosage: 1 TABLET 2 A DAY, 2 A DAY, MOUTH
     Route: 048
     Dates: start: 20130318

REACTIONS (3)
  - Muscle spasms [None]
  - Muscle spasms [None]
  - Pain [None]
